FAERS Safety Report 5250578-3 (Version None)
Quarter: 2007Q1

REPORT INFORMATION
  Report Type: 
  Country: None (occurrence: None)
  Receive Date: 20070228
  Receipt Date: 20060822
  Transmission Date: 20070707
  Serious: Yes (Hospitalization, Disabling, Other)
  Sender: FDA-Public Use
  Company Number: US-GLAXOSMITHKLINE-A0607460A

PATIENT
  Age: 9 Year
  Sex: Male

DRUGS (7)
  1. LAMICTAL [Suspect]
     Indication: EPILEPSY
     Dosage: 125MG PER DAY
     Route: 048
     Dates: start: 20050101
  2. ZONEGRAN [Concomitant]
  3. LEVOCARNITINE [Concomitant]
  4. PHENOBARBITAL TAB [Concomitant]
  5. THIAMINE [Concomitant]
  6. PEPCID [Concomitant]
  7. BACLOFEN [Concomitant]

REACTIONS (1)
  - NEUTROPENIA [None]
